FAERS Safety Report 8542473-9 (Version None)
Quarter: 2012Q3

REPORT INFORMATION
  Report Type: 
  Country: None (occurrence: None)
  Receive Date: 20120726
  Receipt Date: 20110823
  Transmission Date: 20120928
  Serious: Yes (Other)
  Sender: FDA-Public Use
  Company Number: US-ASTRAZENECA-2009SE19136

PATIENT
  Age: 4304 Day
  Sex: Male

DRUGS (5)
  1. SEROQUEL [Suspect]
     Route: 048
     Dates: start: 20030408
  2. REMERON [Concomitant]
     Dates: start: 20021212
  3. AUGMENTIN '500' [Concomitant]
     Dosage: 125-31.25
     Dates: start: 20030324
  4. SULFAMETHOXAZOLE AND TRIMETHOPRIM [Concomitant]
     Dates: start: 20030221
  5. PAXIL CR [Concomitant]
     Dates: start: 20021212

REACTIONS (5)
  - DIABETIC KETOACIDOSIS [None]
  - DIABETIC COMA [None]
  - TYPE 2 DIABETES MELLITUS [None]
  - PANCREATITIS [None]
  - HYPERGLYCAEMIA [None]
